FAERS Safety Report 16645080 (Version 1)
Quarter: 2019Q3

REPORT INFORMATION
  Report Type: Report from Study
  Country: US (occurrence: US)
  Receive Date: 20190729
  Receipt Date: 20190729
  Transmission Date: 20191004
  Serious: Yes (Other)
  Sender: FDA-Public Use
  Company Number: US-GILEAD-2019-0420542

PATIENT
  Age: 53 Year
  Sex: Female

DRUGS (4)
  1. SPIRIVA [Concomitant]
     Active Substance: TIOTROPIUM BROMIDE MONOHYDRATE
     Dosage: 2 PUFFS ONCE DAILY
  2. ADEMPAS [Concomitant]
     Active Substance: RIOCIGUAT
  3. ELIQUIS [Concomitant]
     Active Substance: APIXABAN
  4. AMBRISENTAN [Suspect]
     Active Substance: AMBRISENTAN
     Indication: PRODUCT USED FOR UNKNOWN INDICATION
     Dosage: 10 MG, QD
     Route: 048
     Dates: start: 20150112

REACTIONS (2)
  - Visual impairment [Unknown]
  - Urinary retention [Unknown]
